FAERS Safety Report 7132912-2 (Version None)
Quarter: 2010Q4

REPORT INFORMATION
  Report Type: 
  Country: None (occurrence: None)
  Receive Date: 20101202
  Receipt Date: 20101119
  Transmission Date: 20110411
  Serious: No
  Sender: FDA-Public Use
  Company Number: US-PFIZER INC-US-WYE-H18097010

PATIENT
  Sex: Female
  Weight: 69.388 kg

DRUGS (2)
  1. PREMARIN [Suspect]
     Indication: MENOPAUSAL SYMPTOMS
     Dosage: 1.25 MG, 1X/DAY
     Route: 048
  2. SYNTHROID [Concomitant]

REACTIONS (5)
  - ALOPECIA [None]
  - DRUG INEFFECTIVE [None]
  - MALABSORPTION [None]
  - VULVOVAGINAL DRYNESS [None]
  - WRONG TECHNIQUE IN DRUG USAGE PROCESS [None]
